FAERS Safety Report 4705141-7 (Version None)
Quarter: 2005Q2

REPORT INFORMATION
  Report Type: 
  Country: None (occurrence: None)
  Receive Date: 20050629
  Receipt Date: 20050615
  Transmission Date: 20051028
  Serious: Yes (Death)
  Sender: FDA-Public Use
  Company Number: 2005-BP-10027RO

PATIENT
  Age: 73 Year
  Sex: Male

DRUGS (2)
  1. PREDNISONE TAB [Suspect]
     Indication: LUNG DISORDER
     Dosage: 20 MG BID, PO
     Route: 048
     Dates: start: 20050601, end: 20050612
  2. TOPROL-XL [Concomitant]

REACTIONS (4)
  - COMPLETED SUICIDE [None]
  - INSOMNIA [None]
  - MOOD ALTERED [None]
  - WEIGHT INCREASED [None]
